FAERS Safety Report 4365798-X (Version None)
Quarter: 2004Q2

REPORT INFORMATION
  Report Type: 
  Country: None (occurrence: None)
  Receive Date: 20040520
  Receipt Date: 20040511
  Transmission Date: 20050107
  Serious: Yes (Life-Threatening)
  Sender: FDA-Public Use
  Company Number: 2004AP02221

PATIENT
  Age: 75 Year
  Sex: Male

DRUGS (15)
  1. IRESSA [Suspect]
     Indication: NON-SMALL CELL LUNG CANCER
     Dosage: 250 MG DAILY PO
     Route: 048
     Dates: start: 20040223, end: 20040327
  2. CARBOPLATIN [Concomitant]
  3. PACLITAXEL [Concomitant]
  4. GEMCITABINE [Concomitant]
  5. VINORELBINE TARTRATE [Concomitant]
  6. LOXONIN [Concomitant]
  7. AMOBAN [Concomitant]
  8. BROCIN-CODEINE [Concomitant]
  9. APRICOT KERNAL WATER [Concomitant]
  10. SIMPLE SYRUP [Concomitant]
  11. ASPIRIN [Concomitant]
  12. SERMION [Concomitant]
  13. ZYLORIC ^FAES^ [Concomitant]
  14. NORVASC [Concomitant]
  15. MAINTATE [Concomitant]

REACTIONS (4)
  - PLATELET COUNT INCREASED [None]
  - PLEURAL EFFUSION [None]
  - RESPIRATORY FAILURE [None]
  - URTICARIA [None]
